FAERS Safety Report 4798357-5 (Version None)
Quarter: 2005Q4

REPORT INFORMATION
  Report Type: 
  Country: None (occurrence: None)
  Receive Date: 20051011
  Receipt Date: 20050926
  Transmission Date: 20060501
  Serious: Yes (Death)
  Sender: FDA-Public Use
  Company Number: 032-40

PATIENT
  Age: 77 Year
  Sex: Female

DRUGS (2)
  1. TEVETEN [Suspect]
     Indication: HYPERTENSION
     Dosage: 600 MG QHS PO
     Route: 048
     Dates: start: 20040709, end: 20040918
  2. BENDROFLUAZIDE [Concomitant]

REACTIONS (1)
  - ISCHAEMIC STROKE [None]
